FAERS Safety Report 9693959 (Version 2)
Quarter: 2014Q1

REPORT INFORMATION
  Report Type: Spontaneous
  Country: IT (occurrence: None)
  Receive Date: 20131114
  Receipt Date: 20140123
  Transmission Date: 20141002
  Serious: Yes (Hospitalization, Other)
  Sender: FDA-Public Use
  Company Number: 2013STPI000450

PATIENT
  Age: 73 Year
  Sex: Male

DRUGS (2)
  1. CAMITOR ORAL SOLUTION (LEVOCARNITINE) SOLUTION [Suspect]
     Indication: PRODUCT USED FOR UNKNOWN INDICATION
     Dosage: , ORAL
     Route: 048
  2. PREVISCAN (FLUINDIONE) [Suspect]
     Indication: PRODUCT USED FOR UNKNOWN INDICATION
     Dosage: , ORAL
     Dates: end: 201310

REACTIONS (8)
  - Inflammation [None]
  - Skin lesion [None]
  - Infection [None]
  - Pyrexia [None]
  - Pruritus [None]
  - Toxic skin eruption [None]
  - Skin exfoliation [None]
  - Refusal of treatment by patient [None]
